FAERS Safety Report 12986768 (Version 1)
Quarter: 2016Q4

REPORT INFORMATION
  Report Type: Spontaneous
  Country: NZ (occurrence: NZ)
  Receive Date: 20161130
  Receipt Date: 20161130
  Transmission Date: 20170207
  Serious: Yes (Other)
  Sender: FDA-Public Use
  Company Number: NZ-G+W LABS-GW2016NZ000184

PATIENT

DRUGS (1)
  1. METRONIDAZOLE. [Suspect]
     Active Substance: METRONIDAZOLE
     Indication: GASTROINTESTINAL BACTERIAL OVERGROWTH
     Dosage: 400 MG, TID
     Route: 065
     Dates: start: 200511

REACTIONS (3)
  - Toxic optic neuropathy [Recovered/Resolved]
  - Sensory loss [Unknown]
  - Gait disturbance [Unknown]

NARRATIVE: CASE EVENT DATE: 200606
